FAERS Safety Report 4777070-4 (Version None)
Quarter: 2005Q3

REPORT INFORMATION
  Report Type: 
  Country: None (occurrence: None)
  Receive Date: 20050922
  Receipt Date: 20050922
  Transmission Date: 20060218
  Serious: Yes (Life-Threatening, Hospitalization)
  Sender: FDA-Public Use
  Company Number: None

PATIENT
  Age: 26 Year
  Sex: Female
  Weight: 72.5755 kg

DRUGS (2)
  1. ETHINYL ESTRADIOL 0.120 MG/0.015 MG PER DAY ORGANON [Suspect]
     Indication: CONTRACEPTION
     Dosage: 0.120MG/0.015 MG PER DAY DAILY VAG
     Route: 067
     Dates: start: 20040301, end: 20050301
  2. FOLIC ACID [Concomitant]

REACTIONS (2)
  - PAIN [None]
  - PULMONARY EMBOLISM [None]
